FAERS Safety Report 12172019 (Version 1)
Quarter: 2016Q1

REPORT INFORMATION
  Report Type: Spontaneous
  Country: PT (occurrence: PT)
  Receive Date: 20160311
  Receipt Date: 20160311
  Transmission Date: 20160526
  Serious: Yes (Other)
  Sender: FDA-Public Use
  Company Number: PT-GLAXOSMITHKLINE-PT2016031340

PATIENT
  Age: 38 Year
  Sex: Female
  Weight: 57 kg

DRUGS (2)
  1. MIGRETIL [Concomitant]
     Route: 048
     Dates: start: 20160214, end: 20160216
  2. ZIPOS [Suspect]
     Active Substance: CEFUROXIME AXETIL
     Indication: URTICARIA
     Route: 048
     Dates: start: 20160205, end: 20160220

REACTIONS (3)
  - Hypersensitivity [Recovering/Resolving]
  - Burning sensation [Recovering/Resolving]
  - Urticaria [Recovering/Resolving]

NARRATIVE: CASE EVENT DATE: 20160220
